FAERS Safety Report 6767783-7 (Version None)
Quarter: 2010Q2

REPORT INFORMATION
  Report Type: 
  Country: None (occurrence: None)
  Receive Date: 20100614
  Receipt Date: 20100601
  Transmission Date: 20101027
  Serious: Yes (Other)
  Sender: FDA-Public Use
  Company Number: PHHY2010US33506

PATIENT
  Sex: Female

DRUGS (5)
  1. EXELON [Suspect]
     Indication: AMNESIA
     Dosage: 4.6 MG 1 PATCH PER DAY
     Route: 062
     Dates: start: 20100202, end: 20100422
  2. VITAMINS [Concomitant]
  3. GLUCOPHAG [Concomitant]
  4. WELLBUTRIN XL [Concomitant]
     Indication: DEPRESSION
     Dosage: 450 MG, UNK
     Route: 048
  5. AMBIEN [Concomitant]
     Indication: SLEEP DISORDER
     Dosage: 10 MG, PRN
     Route: 048

REACTIONS (6)
  - ALOPECIA [None]
  - APPLICATION SITE ERYTHEMA [None]
  - APPLICATION SITE PRURITUS [None]
  - APPLICATION SITE SWELLING [None]
  - APPLICATION SITE VESICLES [None]
  - DERMATITIS CONTACT [None]
